FAERS Safety Report 5383116-5 (Version None)
Quarter: 2007Q2

REPORT INFORMATION
  Report Type: 
  Country: None (occurrence: None)
  Receive Date: 20070629
  Receipt Date: 20061122
  Transmission Date: 20071010
  Serious: Yes (Hospitalization)
  Sender: FDA-Public Use
  Company Number: US200610004388

PATIENT
  Age: 27 Year
  Sex: Female
  Weight: 132.4 kg

DRUGS (7)
  1. HUMALOG [Suspect]
     Indication: DIABETES MELLITUS NON-INSULIN-DEPENDENT
     Dosage: 10 U, 2/D
  2. HUMULIN N [Suspect]
     Indication: DIABETES MELLITUS NON-INSULIN-DEPENDENT
     Dosage: 20 U, 2/D
  3. LEXAPRO [Concomitant]
  4. ADVAIR DISKUS 100/50 [Concomitant]
  5. RESTORIL [Concomitant]
  6. METFORMIN HCL [Concomitant]
  7. PREDNISONE TAB [Concomitant]

REACTIONS (7)
  - DIARRHOEA [None]
  - HEADACHE [None]
  - HYPOGLYCAEMIA [None]
  - LEUKOCYTOSIS [None]
  - NAUSEA [None]
  - PYREXIA [None]
  - VOMITING [None]
